FAERS Safety Report 6219166-6 (Version None)
Quarter: 2009Q2

REPORT INFORMATION
  Report Type: 
  Country: None (occurrence: None)
  Receive Date: 20090605
  Receipt Date: 20090605
  Transmission Date: 20091009
  Serious: No
  Sender: FDA-Public Use
  Company Number: None

PATIENT
  Sex: Female
  Weight: 61.2356 kg

DRUGS (1)
  1. TETRACYCLINE [Suspect]
     Indication: ACNE

REACTIONS (3)
  - ANXIETY [None]
  - APATHY [None]
  - FEAR OF DEATH [None]
